FAERS Safety Report 19271339 (Version 3)
Quarter: 2021Q2

REPORT INFORMATION
  Report Type: Spontaneous
  Country: NL (occurrence: NL)
  Receive Date: 20210518
  Receipt Date: 20210628
  Transmission Date: 20210717
  Serious: Yes (Other)
  Sender: FDA-Public Use
  Company Number: NL-SEATTLE GENETICS-2021SGN02726

PATIENT
  Age: 57 Year
  Sex: Female

DRUGS (16)
  1. TUKYSA [Suspect]
     Active Substance: TUCATINIB
     Dosage: 200 MG, BID
     Dates: start: 20210604
  2. OMEPRAZOLE. [Concomitant]
     Active Substance: OMEPRAZOLE
     Dosage: 20 MG, QD
  3. TUKYSA [Suspect]
     Active Substance: TUCATINIB
     Dosage: 250 MG, BID
     Dates: start: 20210511, end: 20210517
  4. TUKYSA [Suspect]
     Active Substance: TUCATINIB
     Dosage: 300 MG, BID
     Route: 048
     Dates: start: 20210304, end: 20210507
  5. FENTANYL. [Concomitant]
     Active Substance: FENTANYL
     Dosage: 50 UG/UUR ONCE Q3DAYS
     Route: 062
  6. MACROGOL [Concomitant]
     Active Substance: POLYETHYLENE GLYCOLS
     Dosage: UNK, QD
     Route: 048
  7. RIVAROXABAN [Concomitant]
     Active Substance: RIVAROXABAN
     Dosage: 20 MG, QD
     Route: 048
  8. ANASTROZOL [Concomitant]
     Active Substance: ANASTROZOLE
     Dosage: 1 MG, QD
     Route: 048
  9. TUKYSA [Suspect]
     Active Substance: TUCATINIB
     Dosage: 250 MG, BID
     Dates: start: 20210610
  10. TUKYSA [Suspect]
     Active Substance: TUCATINIB
     Dosage: 150 MG, BID
     Dates: start: 20210527
  11. TUKYSA [Suspect]
     Active Substance: TUCATINIB
     Indication: HER2 POSITIVE BREAST CANCER
     Dosage: UNK
     Dates: end: 20210507
  12. TUKYSA [Suspect]
     Active Substance: TUCATINIB
     Dosage: UNK
  13. CAPECITABINE. [Suspect]
     Active Substance: CAPECITABINE
     Indication: HER2 POSITIVE BREAST CANCER
     Dosage: UNK
     Dates: start: 20210511
  14. PARACETAMOL [Concomitant]
     Active Substance: ACETAMINOPHEN
     Dosage: 500 MG
     Route: 048
  15. ZOPICLON [Concomitant]
     Active Substance: ZOPICLONE
     Dosage: 7.5 MG, QD IF NEEDED
  16. FENTANYL. [Concomitant]
     Active Substance: FENTANYL
     Dosage: 200 UG AS NEEDED
     Route: 060

REACTIONS (10)
  - Haemoglobin abnormal [Unknown]
  - Hyperbilirubinaemia [Recovered/Resolved]
  - Haptoglobin decreased [Unknown]
  - Blood bilirubin increased [Recovered/Resolved]
  - Haemoglobin decreased [Unknown]
  - Folate deficiency [Unknown]
  - Hepatic failure [Unknown]
  - Unevaluable event [Unknown]
  - Reticulocyte count increased [Unknown]
  - Medication error [Unknown]

NARRATIVE: CASE EVENT DATE: 20210507
